FAERS Safety Report 4868635-X (Version None)
Quarter: 2005Q4

REPORT INFORMATION
  Report Type: 
  Country: None (occurrence: None)
  Receive Date: 20051223
  Receipt Date: 20051212
  Transmission Date: 20060501
  Serious: Yes (Hospitalization)
  Sender: FDA-Public Use
  Company Number: 220266

PATIENT
  Age: 52 Year
  Sex: Male

DRUGS (1)
  1. PULMOZYME [Suspect]
     Indication: CYSTIC FIBROSIS

REACTIONS (2)
  - DRUG HYPERSENSITIVITY [None]
  - PYREXIA [None]
